FAERS Safety Report 7619777-7 (Version None)
Quarter: 2011Q3

REPORT INFORMATION
  Report Type: 
  Country: None (occurrence: None)
  Receive Date: 20110719
  Receipt Date: 20110707
  Transmission Date: 20111222
  Serious: No
  Sender: FDA-Public Use
  Company Number: US-US-EMD SERONO, INC.-232611J10USA

PATIENT
  Sex: Female
  Weight: 69 kg

DRUGS (2)
  1. REBIF [Suspect]
     Indication: MULTIPLE SCLEROSIS
     Route: 058
     Dates: start: 20081022, end: 20100128
  2. URECHOLINE [Concomitant]
     Indication: URINARY RETENTION
     Dates: start: 20090213

REACTIONS (4)
  - HYPOTONIC URINARY BLADDER [None]
  - URINE FLOW DECREASED [None]
  - NEUTRALISING ANTIBODIES [None]
  - INFLUENZA LIKE ILLNESS [None]
